FAERS Safety Report 5171299-1 (Version None)
Quarter: 2006Q4

REPORT INFORMATION
  Report Type: 
  Country: None (occurrence: None)
  Receive Date: 20061213
  Receipt Date: 20051103
  Transmission Date: 20070319
  Serious: Yes (Other)
  Sender: FDA-Public Use
  Company Number: US-AMGEN-US156634

PATIENT
  Sex: Female
  Weight: 64 kg

DRUGS (4)
  1. ENBREL [Suspect]
     Indication: PSORIATIC ARTHROPATHY
     Route: 058
     Dates: start: 20040101, end: 20051019
  2. ADVIL [Concomitant]
  3. ELOCON [Concomitant]
  4. XANAX [Concomitant]

REACTIONS (1)
  - MULTIPLE SCLEROSIS [None]
